FAERS Safety Report 6680841-0 (Version None)
Quarter: 2010Q2

REPORT INFORMATION
  Report Type: 
  Country: None (occurrence: None)
  Receive Date: 20100412
  Receipt Date: 20100330
  Transmission Date: 20101027
  Serious: Yes (Death)
  Sender: FDA-Public Use
  Company Number: 008702

PATIENT
  Age: 80 Year
  Sex: Male

DRUGS (6)
  1. PLETAAL        (CLIOSTAZOL) [Suspect]
     Dosage: 100 MG, QD
     Route: 048
     Dates: start: 20100121, end: 20100122
  2. AVOLVE (DUTASTERIDE) CAPSULE [Suspect]
     Indication: BENIGN PROSTATIC HYPERPLASIA
     Dosage: 0.5 MG, DAILY DOSE
     Route: 048
     Dates: end: 20100122
  3. EVIPROSTAT (PIPSISSEWA EXTRACT_JAPANESE ASPEN EXTRACT COMBIED DRUG) TA [Suspect]
     Indication: BENIGN PROSTATIC HYPERPLASIA
     Route: 048
     Dates: end: 20100122
  4. NORVASC [Suspect]
     Dosage: 5 MG, QD
     Route: 048
     Dates: start: 20100121, end: 20100122
  5. PANALDINE (TICLOPIDINE HYDROCHLORIDE); REGIMEN #1 [Suspect]
     Dosage: 100 MG, QD
     Route: 048
     Dates: start: 20100121, end: 20100122
  6. SULBACTAM (SULBACTAM) INJECTION; REGIMEN #1 [Suspect]

REACTIONS (13)
  - ACCIDENTAL EXPOSURE [None]
  - ANAPHYLACTIC REACTION [None]
  - BLOOD PRESSURE DECREASED [None]
  - CARDIAC FAILURE CHRONIC [None]
  - CARDIO-RESPIRATORY ARREST [None]
  - CIRCULATORY COLLAPSE [None]
  - CONDITION AGGRAVATED [None]
  - INFLUENZA [None]
  - MEDICATION ERROR [None]
  - PLEURAL EFFUSION [None]
  - PYREXIA [None]
  - TRYPTASE INCREASED [None]
  - VASODILATATION [None]
